FAERS Safety Report 9040368 (Version 1)
Quarter: 2013Q1

REPORT INFORMATION
  Report Type: Report from Study
  Country: US (occurrence: US)
  Receive Date: 20130129
  Receipt Date: 20130129
  Transmission Date: 20140127
  Serious: No
  Sender: FDA-Public Use
  Company Number: US-ABBOTT-12P-163-0894140-00

PATIENT
  Age: 38 Year
  Sex: Male

DRUGS (2)
  1. HUMIRA 40 MG/0.8 ML PEN [Suspect]
     Indication: COLITIS ULCERATIVE
     Dosage: (160 MG, 1ST DOSE)
     Dates: start: 20120102, end: 20120102
  2. HUMIRA 40 MG/0.8 ML PEN [Suspect]
     Dosage: (80 MG, 2ND DOSE)
     Dates: start: 20120116

REACTIONS (4)
  - Paraesthesia [Recovering/Resolving]
  - Pain [Recovering/Resolving]
  - Asthenia [Unknown]
  - Decreased activity [Unknown]
